FAERS Safety Report 7542267-7 (Version None)
Quarter: 2011Q2

REPORT INFORMATION
  Report Type: 
  Country: None (occurrence: None)
  Receive Date: 20110606
  Receipt Date: 20110520
  Transmission Date: 20111010
  Serious: Yes (Death)
  Sender: FDA-Public Use
  Company Number: AUR-APL-2011-01769

PATIENT
  Age: 62 Year
  Sex: Female
  Weight: 121 kg

DRUGS (2)
  1. SIMVASTATIN [Suspect]
  2. GABAPENTIN [Suspect]
     Dosage: 300MG-ORAL
     Route: 048

REACTIONS (10)
  - LIPOMATOUS HYPERTROPHY OF THE INTERATRIAL SEPTUM [None]
  - NEPHROSCLEROSIS [None]
  - UNRESPONSIVE TO STIMULI [None]
  - CARDIOMEGALY [None]
  - GOITRE [None]
  - TOXICITY TO VARIOUS AGENTS [None]
  - WRONG TECHNIQUE IN DRUG USAGE PROCESS [None]
  - CORONARY ARTERY DISEASE [None]
  - COMPLETED SUICIDE [None]
  - MULTIPLE DRUG OVERDOSE INTENTIONAL [None]
